FAERS Safety Report 20889200 (Version 4)
Quarter: 2022Q4

REPORT INFORMATION
  Report Type: Spontaneous
  Country: DE (occurrence: DE)
  Receive Date: 20220530
  Receipt Date: 20221213
  Transmission Date: 20230113
  Serious: Yes (Hospitalization, Disabling, Other)
  Sender: FDA-Public Use
  Company Number: DE-BRISTOL-MYERS SQUIBB COMPANY-2022-043099

PATIENT
  Age: 55 Year
  Sex: Male

DRUGS (1)
  1. ZEPOSIA [Suspect]
     Active Substance: OZANIMOD HYDROCHLORIDE
     Indication: Multiple sclerosis
     Dosage: DOSE : UNAVAILABLE;     FREQ : UNAVAILABLE
     Dates: start: 20220404, end: 20220517

REACTIONS (5)
  - Small intestine neuroendocrine tumour [Not Recovered/Not Resolved]
  - Metastases to peritoneum [Recovering/Resolving]
  - Ascites [Recovering/Resolving]
  - Hepatic lesion [Recovering/Resolving]
  - Ileus [Recovering/Resolving]

NARRATIVE: CASE EVENT DATE: 20220501
